FAERS Safety Report 20755688 (Version 2)
Quarter: 2022Q2

REPORT INFORMATION
  Report Type: Spontaneous
  Country: US (occurrence: US)
  Receive Date: 20220427
  Receipt Date: 20220509
  Transmission Date: 20220720
  Serious: No
  Sender: FDA-Public Use
  Company Number: US-PFIZER INC-202200484655

PATIENT
  Age: 72 Year
  Sex: Female
  Weight: 58.51 kg

DRUGS (2)
  1. ESTRING [Suspect]
     Active Substance: ESTRADIOL
     Indication: Menopausal symptoms
     Dosage: 2 MG, EVERY 3 MONTHS
     Route: 067
  2. ASPIRIN [Concomitant]
     Active Substance: ASPIRIN
     Dosage: 81 MG

REACTIONS (2)
  - Drug ineffective [Unknown]
  - Device defective [Unknown]

NARRATIVE: CASE EVENT DATE: 20220101
